FAERS Safety Report 21048116 (Version 1)
Quarter: 2022Q3

REPORT INFORMATION
  Report Type: Spontaneous
  Country: US (occurrence: US)
  Receive Date: 20220706
  Receipt Date: 20220706
  Transmission Date: 20221027
  Serious: No
  Sender: FDA-Public Use
  Company Number: US-TITAN PHARMACEUTICALS-2021TAN00157

PATIENT
  Sex: Male

DRUGS (4)
  1. PROBUPHINE [Suspect]
     Active Substance: BUPRENORPHINE HYDROCHLORIDE
     Indication: Drug dependence
     Dosage: 3 ROD, IN LUE (LEFT UPPER EXTREMITY)
     Dates: start: 20190731, end: 20190821
  2. PROBUPHINE [Suspect]
     Active Substance: BUPRENORPHINE HYDROCHLORIDE
     Dosage: 1 ROD, IN LUE (LEFT UPPER EXTREMITY)
     Dates: start: 20190821
  3. VITAMINS [Concomitant]
     Active Substance: VITAMINS
  4. OMEGA 3 [Concomitant]
     Active Substance: CAPSAICIN

REACTIONS (9)
  - Complication of device removal [Recovered/Resolved]
  - Irritability [Unknown]
  - Incorrect product administration duration [Recovered/Resolved]
  - Scar [Not Recovered/Not Resolved]
  - Incorrect product administration duration [Recovered/Resolved]
  - Implant site swelling [Unknown]
  - Wound [Recovered/Resolved]
  - Unevaluable event [Unknown]
  - Somnolence [Unknown]

NARRATIVE: CASE EVENT DATE: 20190101
